FAERS Safety Report 10526392 (Version 3)
Quarter: 2015Q1

REPORT INFORMATION
  Report Type: Spontaneous
  Country: JP (occurrence: JP)
  Receive Date: 20141020
  Receipt Date: 20150115
  Transmission Date: 20150720
  Serious: Yes (Hospitalization)
  Sender: FDA-Public Use
  Company Number: JP-009507513-1410JPN005803

PATIENT
  Age: 68 Year
  Sex: Male

DRUGS (5)
  1. MENESIT TABLETS - 100 [Suspect]
     Active Substance: CARBIDOPA\LEVODOPA
     Dosage: 600 MG, QD(DIVIDED DOSE FREQUENCY UNKNOWN)
     Route: 048
  2. COMTAN [Concomitant]
     Active Substance: ENTACAPONE
     Indication: PARKINSON^S DISEASE
     Dosage: 100 MG, 6 IN ONE DAY
     Route: 048
  3. ZONISAMIDE. [Concomitant]
     Active Substance: ZONISAMIDE
     Indication: PARKINSON^S DISEASE
     Dosage: 75MG, QD  (DIVIDED DOSE FREQUENCY UNKNOWN)FORMULATION POR
     Route: 048
  4. MENESIT TABLETS - 100 [Suspect]
     Active Substance: CARBIDOPA\LEVODOPA
     Indication: PARKINSON^S DISEASE
     Dosage: 100 MG, 8 ONE DAY
     Route: 048
  5. PRAMIPEXOLE DIHYDROCHLORIDE. [Concomitant]
     Active Substance: PRAMIPEXOLE DIHYDROCHLORIDE
     Indication: PARKINSON^S DISEASE
     Dosage: 2 MG, QD(DIVIDED DOSE FREQUENCY UNKNOWN)
     Route: 048

REACTIONS (5)
  - Drug effect delayed [Unknown]
  - Drug effect decreased [Recovered/Resolved]
  - Drug level decreased [Recovering/Resolving]
  - Food interaction [Unknown]
  - Overdose [Unknown]
